FAERS Safety Report 8312585-3 (Version None)
Quarter: 2012Q2

REPORT INFORMATION
  Report Type: 
  Country: None (occurrence: None)
  Receive Date: 20120424
  Receipt Date: 20120416
  Transmission Date: 20120825
  Serious: Yes (Hospitalization)
  Sender: FDA-Public Use
  Company Number: 2012SP020466

PATIENT
  Age: 58 Year
  Sex: Male
  Weight: 93.5317 kg

DRUGS (1)
  1. BOCEPREVIR [Suspect]
     Indication: HEPATITIS C

REACTIONS (1)
  - ATRIAL FIBRILLATION [None]
